FAERS Safety Report 7556389-8 (Version None)
Quarter: 2011Q2

REPORT INFORMATION
  Report Type: 
  Country: None (occurrence: None)
  Receive Date: 20110615
  Receipt Date: 20110615
  Transmission Date: 20111010
  Serious: Yes (Other)
  Sender: FDA-Public Use
  Company Number: None

PATIENT
  Age: 5 Year
  Sex: Male
  Weight: 16.8 kg

DRUGS (1)
  1. LEVETIRACETAM [Suspect]
     Indication: CONVULSION
     Dosage: 30MG/KG/DOSE BID PO
     Route: 048
     Dates: start: 20110605, end: 20110609

REACTIONS (2)
  - HALLUCINATION, VISUAL [None]
  - CONVULSION [None]
